FAERS Safety Report 5163396-1 (Version None)
Quarter: 2006Q4

REPORT INFORMATION
  Report Type: 
  Country: None (occurrence: None)
  Receive Date: 20061204
  Receipt Date: 20061121
  Transmission Date: 20070319
  Serious: Yes (Other)
  Sender: FDA-Public Use
  Company Number: PHBS2006JP18152

PATIENT
  Age: 42 Year
  Sex: Female

DRUGS (2)
  1. RITALIN [Suspect]
     Dosage: 30 MG/D
     Route: 048
  2. DRUG THERAPY NOS [Concomitant]

REACTIONS (2)
  - NYSTAGMUS [None]
  - OCULOGYRATION [None]
